FAERS Safety Report 21752833 (Version 2)
Quarter: 2023Q1

REPORT INFORMATION
  Report Type: Report from Study
  Country: CA (occurrence: CA)
  Receive Date: 20221220
  Receipt Date: 20230117
  Transmission Date: 20230418
  Serious: Yes (Death)
  Sender: FDA-Public Use
  Company Number: CA-BAYER-2022A172057

PATIENT
  Sex: Male

DRUGS (4)
  1. EYLEA [Suspect]
     Active Substance: AFLIBERCEPT
     Indication: Age-related macular degeneration
     Dosage: BOTH EYES, DOSE WAS NOT REPORTED, SOLUTION FOR INJECTION, 40 MG/ML
     Route: 031
     Dates: start: 20220126, end: 20220126
  2. EYLEA [Suspect]
     Active Substance: AFLIBERCEPT
     Dosage: BOTH EYES, DOSE WAS NOT REPORTED, SOLUTION FOR INJECTION, 40 MG/ML
     Route: 031
     Dates: start: 20220405, end: 20220405
  3. EYLEA [Suspect]
     Active Substance: AFLIBERCEPT
     Dosage: BOTH EYES, DOSE WAS NOT REPORTED, SOLUTION FOR INJECTION, 40 MG/ML
     Route: 031
     Dates: start: 20220614, end: 20220614
  4. EYLEA [Suspect]
     Active Substance: AFLIBERCEPT
     Dosage: BOTH EYES, DOSE WAS NOT REPORTED, SOLUTION FOR INJECTION, 40 MG/ML
     Route: 031
     Dates: start: 20220823, end: 20220823

REACTIONS (1)
  - Chronic obstructive pulmonary disease [Fatal]

NARRATIVE: CASE EVENT DATE: 20221102
